FAERS Safety Report 18734287 (Version 1)
Quarter: 2021Q1

REPORT INFORMATION
  Report Type: Spontaneous
  Country: US (occurrence: US)
  Receive Date: 20210112
  Receipt Date: 20210112
  Transmission Date: 20210419
  Serious: Yes (Other)
  Sender: FDA-Public Use
  Company Number: None

PATIENT
  Age: 59 Year
  Sex: Female
  Weight: 112 kg

DRUGS (1)
  1. BAMLANIVIMAB. [Suspect]
     Active Substance: BAMLANIVIMAB
     Route: 041
     Dates: start: 20210103, end: 20210103

REACTIONS (3)
  - Infusion related reaction [None]
  - Hypotension [None]
  - Staphylococcal bacteraemia [None]

NARRATIVE: CASE EVENT DATE: 20210103
